FAERS Safety Report 8831356 (Version 2)
Quarter: 2012Q4

REPORT INFORMATION
  Report Type: Report from Study
  Country: JP (occurrence: JP)
  Receive Date: 20121008
  Receipt Date: 20121206
  Transmission Date: 20130627
  Serious: Yes (Hospitalization, Other)
  Sender: FDA-Public Use
  Company Number: JP-VERTEX PHARMACEUTICAL INC.-AE-2012-010458

PATIENT
  Age: 64 Year
  Sex: Female

DRUGS (16)
  1. VX-950 (TELAPREVIR) [Suspect]
     Indication: CHRONIC HEPATITIS C
     Dosage: 2250 mg, qd
     Route: 048
     Dates: start: 20120404, end: 20120514
  2. VX-950 (TELAPREVIR) [Suspect]
     Dosage: 750 mg, qd
     Route: 048
     Dates: start: 20120515, end: 20120521
  3. VX-950 (TELAPREVIR) [Suspect]
     Dosage: 750 mg, qd
     Route: 048
     Dates: start: 20120605, end: 20120702
  4. RIBAVIRIN [Suspect]
     Indication: CHRONIC HEPATITIS C
     Dosage: 600 mg, qd
     Route: 048
     Dates: start: 20120404, end: 20120416
  5. RIBAVIRIN [Suspect]
     Dosage: 200 mg, qd
     Route: 048
     Dates: start: 20120417, end: 20120507
  6. RIBAVIRIN [Suspect]
     Dosage: 57.14 mg, qd
     Route: 048
     Dates: start: 20120508, end: 20120514
  7. RIBAVIRIN [Suspect]
     Dosage: 200 mg, qod
     Route: 048
     Dates: start: 20120605, end: 20120618
  8. RIBAVIRIN [Suspect]
     Dosage: 200 mg, qod
     Route: 048
     Dates: start: 20120626, end: 20120827
  9. RIBAVIRIN [Suspect]
     Dosage: 200 mg, qd
     Route: 048
     Dates: start: 20120911
  10. PEGINTERFERON ALFA-2B [Suspect]
     Indication: CHRONIC HEPATITIS C
     Dosage: 1.4?g/kg, qw
     Route: 058
     Dates: start: 20120404, end: 20120827
  11. PEGINTERFERON ALFA-2B [Suspect]
     Dosage: 0.7 ?g/kg, qw
     Route: 058
     Dates: start: 20120904
  12. PROHEPARUM [Concomitant]
     Dosage: 6 DF, qd
     Route: 048
     Dates: end: 20120522
  13. OMEPRAZOLE [Concomitant]
     Dosage: 20 mg, qd
     Route: 048
     Dates: start: 20120406
  14. NOVAMIN                            /00013301/ [Concomitant]
     Dosage: 15 mg, qd
     Route: 048
     Dates: start: 20120424, end: 20120625
  15. URSO                               /00465701/ [Concomitant]
     Dosage: 300 mg, qd
     Route: 048
     Dates: end: 20120522
  16. RIVOTRIL [Concomitant]
     Dosage: 0.5 mg, qd
     Route: 048
     Dates: start: 20120904

REACTIONS (2)
  - Decreased appetite [Recovered/Resolved]
  - Haemoglobin decreased [Recovered/Resolved]
